FAERS Safety Report 5257756-8 (Version None)
Quarter: 2007Q1

REPORT INFORMATION
  Report Type: 
  Country: None (occurrence: None)
  Receive Date: 20070302
  Receipt Date: 20070214
  Transmission Date: 20070707
  Serious: Yes (Hospitalization)
  Sender: FDA-Public Use
  Company Number: DSA_29464_2007

PATIENT
  Age: 7 Year
  Sex: Male

DRUGS (4)
  1. LORAZEPAM [Suspect]
     Dosage: 1 MG ONCE SL
     Dates: start: 20070214, end: 20070214
  2. LORAZEPAM [Suspect]
     Dosage: DF PRN SL
  3. OXCARBAZEPINE [Suspect]
     Dosage: DF PO
     Route: 048
  4. VALPROIC ACID [Suspect]
     Dosage: DF PO
     Route: 048

REACTIONS (4)
  - DIPLOPIA [None]
  - DRUG ADMINISTRATION ERROR [None]
  - FATIGUE [None]
  - GAIT DISTURBANCE [None]
